FAERS Safety Report 4400094-3 (Version None)
Quarter: 2004Q3

REPORT INFORMATION
  Report Type: 
  Country: None (occurrence: None)
  Receive Date: 20040714
  Receipt Date: 20040707
  Transmission Date: 20050211
  Serious: Yes (Life-Threatening)
  Sender: FDA-Public Use
  Company Number: 2004222842GB

PATIENT
  Age: 49 Year
  Weight: 86.2 kg

DRUGS (1)
  1. SULFASALAZINE [Suspect]
     Indication: COLITIS ULCERATIVE
     Dosage: 2 G/DAY
     Dates: start: 20031222, end: 20031229

REACTIONS (2)
  - EYE REDNESS [None]
  - NEUTROPENIA [None]
